FAERS Safety Report 20112607 (Version 1)
Quarter: 2021Q4

REPORT INFORMATION
  Report Type: Spontaneous
  Country: IR (occurrence: IR)
  Receive Date: 20211125
  Receipt Date: 20211125
  Transmission Date: 20220303
  Serious: Yes (Death, Hospitalization, Other)
  Sender: FDA-Public Use
  Company Number: IR-LUPIN PHARMACEUTICALS INC.-2021-22995

PATIENT
  Age: 74 Year
  Sex: Female

DRUGS (6)
  1. METHYLPREDNISOLONE [Suspect]
     Active Substance: METHYLPREDNISOLONE
     Indication: COVID-19 pneumonia
     Dosage: 130 MILLIGRAM
     Route: 065
     Dates: start: 202008
  2. INTERFERON BETA-1B [Suspect]
     Active Substance: INTERFERON BETA-1B
     Indication: COVID-19 pneumonia
     Dosage: 0.25 MILLIGRAM; FOUR DOSES (EVERY 48 H)
     Route: 058
     Dates: start: 202008
  3. INSULIN NOS [Concomitant]
     Active Substance: INSULIN NOS
     Indication: Diabetes mellitus
     Dosage: UNK
     Route: 065
     Dates: start: 202008
  4. TARGOCID [Concomitant]
     Active Substance: TEICOPLANIN
     Indication: Antibiotic therapy
     Dosage: 6 MILLIGRAM/KILOGRAM
     Route: 065
     Dates: start: 202008
  5. PIPERACILLIN SODIUM\TAZOBACTAM SODIUM [Concomitant]
     Active Substance: PIPERACILLIN SODIUM\TAZOBACTAM SODIUM
     Indication: Antibiotic therapy
     Dosage: 4.5 GRAM
     Route: 065
     Dates: start: 202008
  6. AMBISOME [Concomitant]
     Active Substance: AMPHOTERICIN B
     Indication: Fungal skin infection
     Dosage: 5 MILLIGRAM/KILOGRAM, QD
     Route: 065
     Dates: start: 202008

REACTIONS (2)
  - Systemic mycosis [Fatal]
  - Off label use [Unknown]

NARRATIVE: CASE EVENT DATE: 20200801
